FAERS Safety Report 4370916-3 (Version None)
Quarter: 2004Q2

REPORT INFORMATION
  Report Type: 
  Country: None (occurrence: None)
  Receive Date: 20040601
  Receipt Date: 20040519
  Transmission Date: 20050107
  Serious: Yes (Death)
  Sender: FDA-Public Use
  Company Number: HU-JNJFOC-20040504405

PATIENT
  Age: 74 Year
  Sex: Male

DRUGS (9)
  1. DURAGESIC [Suspect]
     Indication: ABDOMINAL PAIN
     Dosage: 50 UG/HR, TRANSDERMAL
     Route: 062
     Dates: start: 20040508
  2. PTK787/ZK 222584 (ALL OTHER THERAPEUTIC PRODUCTS) [Suspect]
     Indication: COLORECTAL CANCER METASTATIC
     Dosage: 1250 MG
     Dates: start: 20040303
  3. PLACEBO (PLACEBO) [Suspect]
     Indication: COLORECTAL CANCER
     Dosage: 1250 MG
     Dates: start: 20040303
  4. OXALIPLATIN [Concomitant]
  5. FLUOROURACIL [Concomitant]
  6. LEUCOVORIN CALCIUM [Concomitant]
  7. CAVINTON (VINPOCETINE) [Concomitant]
  8. NITROMINT (GLYCERYL TRINITRATE) [Concomitant]
  9. BAYPRESS (NITRENDIPINE) [Concomitant]

REACTIONS (7)
  - ANOREXIA [None]
  - ASTHENIA [None]
  - CONFUSIONAL STATE [None]
  - DISEASE PROGRESSION [None]
  - GASTROINTESTINAL CANCER METASTATIC [None]
  - SOMNOLENCE [None]
  - SUDDEN DEATH [None]
